FAERS Safety Report 9999356 (Version 1)
Quarter: 2014Q1

REPORT INFORMATION
  Report Type: Spontaneous
  Country: US (occurrence: None)
  Receive Date: 20140311
  Receipt Date: 20140311
  Transmission Date: 20141002
  Serious: Yes (Life-Threatening, Hospitalization)
  Sender: FDA-Public Use
  Company Number: None

PATIENT
  Age: 67 Year
  Sex: Female
  Weight: 63.3 kg

DRUGS (1)
  1. PROLIA [Suspect]
     Indication: OSTEOPOROSIS
     Route: 058
     Dates: start: 20140210, end: 20140210

REACTIONS (6)
  - Convulsion [None]
  - Muscle twitching [None]
  - Confusional state [None]
  - Agitation [None]
  - Muscle contracture [None]
  - Electrocardiogram QT prolonged [None]
